FAERS Safety Report 11860005 (Version 7)
Quarter: 2017Q3

REPORT INFORMATION
  Report Type: Report from Study
  Country: US (occurrence: US)
  Receive Date: 20151222
  Receipt Date: 20170822
  Transmission Date: 20171127
  Serious: Yes (Death, Hospitalization, Other)
  Sender: FDA-Public Use
  Company Number: PHEH2015US026303

PATIENT
  Age: 69 Year
  Sex: Female

DRUGS (5)
  1. TAXOTERE [Concomitant]
     Active Substance: DOCETAXEL
     Indication: GASTRIC CANCER
     Route: 065
  2. FLOUROURACIL [Concomitant]
     Active Substance: FLUOROURACIL
     Indication: GASTRIC CANCER
     Route: 065
  3. ENTRESTO [Suspect]
     Active Substance: SACUBITRIL\VALSARTAN
     Dosage: 1 DF (97/103 MG), UNK
     Route: 065
  4. ENTRESTO [Suspect]
     Active Substance: SACUBITRIL\VALSARTAN
     Indication: CARDIAC FAILURE CONGESTIVE
     Dosage: UNK
     Route: 065
     Dates: start: 20151214
  5. NASACORT [Concomitant]
     Active Substance: TRIAMCINOLONE ACETONIDE
     Indication: PRODUCT USED FOR UNKNOWN INDICATION
     Dosage: UNK, PRN
     Route: 065

REACTIONS (11)
  - Gastric cancer stage IV [Fatal]
  - Oropharyngeal pain [Unknown]
  - White blood cell count decreased [Unknown]
  - Dysphagia [Unknown]
  - General physical health deterioration [Unknown]
  - Metastases to lung [Not Recovered/Not Resolved]
  - Aphonia [Unknown]
  - Restlessness [Unknown]
  - Fatigue [Unknown]
  - Concomitant disease progression [Fatal]
  - Stomatitis [Unknown]

NARRATIVE: CASE EVENT DATE: 20160106
